FAERS Safety Report 7563493-7 (Version None)
Quarter: 2011Q2

REPORT INFORMATION
  Report Type: 
  Country: None (occurrence: None)
  Receive Date: 20110622
  Receipt Date: 20110621
  Transmission Date: 20111010
  Serious: Yes (Hospitalization)
  Sender: FDA-Public Use
  Company Number: US-ABBOTT-11P-163-0700497-00

PATIENT
  Sex: Female
  Weight: 3.178 kg

DRUGS (1)
  1. HUMIRA [Suspect]
     Indication: DRUG EXPOSURE DURING PREGNANCY
     Route: 064

REACTIONS (4)
  - DRUG EXPOSURE VIA BREAST MILK [None]
  - NEONATAL ASPIRATION [None]
  - RESPIRATORY DISTRESS [None]
  - DRUG EXPOSURE DURING PREGNANCY [None]
